FAERS Safety Report 7944562-6 (Version None)
Quarter: 2011Q4

REPORT INFORMATION
  Report Type: 
  Country: None (occurrence: None)
  Receive Date: 20111122
  Receipt Date: 20110719
  Transmission Date: 20120403
  Serious: No
  Sender: FDA-Public Use
  Company Number: PHHY2011US62858

PATIENT
  Age: 59 Year
  Sex: Female

DRUGS (7)
  1. WELLBUTRIN [Concomitant]
  2. MIRAPEX [Concomitant]
  3. CYMBALTA [Concomitant]
  4. ATIVAN [Concomitant]
  5. GILENYA [Suspect]
     Indication: MULTIPLE SCLEROSIS
     Dosage: 0.5 MG, DAILY, ORAL
     Route: 048
     Dates: start: 20110622
  6. NEURONTIN [Concomitant]
  7. PERCOCET [Concomitant]

REACTIONS (3)
  - PHOTOPSIA [None]
  - HEADACHE [None]
  - FATIGUE [None]
